FAERS Safety Report 9702648 (Version 1)
Quarter: 2013Q4

REPORT INFORMATION
  Report Type: Spontaneous
  Country: GB (occurrence: None)
  Receive Date: 20131120
  Receipt Date: 20131120
  Transmission Date: 20140711
  Serious: Yes (Other)
  Sender: FDA-Public Use
  Company Number: FK201304959

PATIENT
  Age: 66 Year
  Sex: 0
  Weight: 57 kg

DRUGS (4)
  1. ONDANSETRON [Suspect]
     Indication: ANTIEMETIC SUPPORTIVE CARE
     Dosage: 8 MG, UNKNOWN , INTRAVENOUS, (NOT OTHERWISE SPECIFIED)
     Route: 042
  2. OXALIPLATIN [Suspect]
     Indication: OESOPHAGEAL CARCINOMA
     Dosage: 210 MG, UNKNOWN, INTRAVENOUS  (NOT OTHERWISE SPECIFIED)?
     Route: 042
  3. RALTITREXED [Suspect]
     Indication: OESOPHAGEAL CARCINOMA
     Dosage: 4.9 MG, UNKNOWN, INTRAVENOUS (NOT OTHERWISE SPECIFIED)
     Route: 042
  4. DEXAMETHASONE (DEXAMETHASONE SODIUM PHOSPHATE) [Concomitant]

REACTIONS (4)
  - Blister [None]
  - Discomfort [None]
  - Rash erythematous [None]
  - Rash generalised [None]
